FAERS Safety Report 9828604 (Version 1)
Quarter: 2013Q4

REPORT INFORMATION
  Report Type: Spontaneous
  Country: US (occurrence: None)
  Receive Date: 20131120
  Receipt Date: 20131120
  Transmission Date: 20140711
  Serious: No
  Sender: FDA-Public Use
  Company Number: 1000047489

PATIENT
  Age: 56 Year
  Sex: Female
  Weight: 84.37 kg

DRUGS (4)
  1. VIIBRYD (VILAZODONE HYDROCHLORIDE) (10 MILLIGRAM, TABLETS) [Suspect]
     Indication: DEPRESSION
     Dosage: 10MG (10 MG, 1 IN 1 D), ORAL
     Route: 048
     Dates: start: 20130626, end: 20130702
  2. VIIBRYD (VILAZODONE HYDROCHLORIDE) (10 MILLIGRAM, TABLETS) [Suspect]
     Indication: ANXIETY
     Dosage: 10MG (10 MG, 1 IN 1 D), ORAL
     Route: 048
     Dates: start: 20130626, end: 20130702
  3. TAPAZOLE (THIAMAZOLE) (THIAMAZOLE) [Concomitant]
  4. TAPAZOLE (THIAMAZOLE) (THIAMAZOLE) [Concomitant]

REACTIONS (1)
  - Weight increased [None]
